FAERS Safety Report 6069896-4 (Version None)
Quarter: 2009Q1

REPORT INFORMATION
  Report Type: 
  Country: None (occurrence: None)
  Receive Date: 20090209
  Receipt Date: 20090107
  Transmission Date: 20090719
  Serious: No
  Sender: FDA-Public Use
  Company Number: US-BAYER-200910518NA

PATIENT
  Age: 48 Year
  Sex: Female
  Weight: 102 kg

DRUGS (5)
  1. MIRENA [Suspect]
     Indication: MENORRHAGIA
     Route: 015
     Dates: start: 20070301
  2. PAXIL CR [Concomitant]
  3. FLEXERIL [Concomitant]
  4. HYDROXYZINE [Concomitant]
  5. VITAMIN B12 SHOTS [Concomitant]

REACTIONS (1)
  - AMENORRHOEA [None]
